FAERS Safety Report 5946846-X (Version None)
Quarter: 2008Q4

REPORT INFORMATION
  Report Type: 
  Country: None (occurrence: None)
  Receive Date: 20081021
  Receipt Date: 20080201
  Transmission Date: 20090506
  Serious: Yes (Hospitalization, Other)
  Sender: FDA-Public Use
  Company Number: HQWYE804510MAY04

PATIENT
  Age: 55 Year
  Sex: Female

DRUGS (3)
  1. PREMARIN [Suspect]
     Indication: OESTROGEN REPLACEMENT THERAPY
     Dosage: ORAL
     Route: 048
     Dates: start: 19900101, end: 20010101
  2. PREMPRO [Suspect]
  3. PROVERA [Suspect]
     Indication: HORMONE REPLACEMENT THERAPY

REACTIONS (2)
  - BREAST CANCER [None]
  - CEREBROVASCULAR ACCIDENT [None]
